FAERS Safety Report 4938918-3 (Version None)
Quarter: 2006Q1

REPORT INFORMATION
  Report Type: 
  Country: None (occurrence: None)
  Receive Date: 20060309
  Receipt Date: 20050414
  Transmission Date: 20060701
  Serious: Yes (Hospitalization)
  Sender: FDA-Public Use
  Company Number: US-MERCK-0504USA02604

PATIENT
  Age: 47 Year
  Sex: Male

DRUGS (5)
  1. VIOXX [Suspect]
     Indication: PAIN
     Route: 048
  2. VIOXX [Suspect]
     Indication: ARTHRITIS
     Route: 048
  3. SEROQUEL [Concomitant]
     Route: 065
  4. HALOPERIDOL [Concomitant]
     Route: 065
  5. [THERAPY UNSPECIFIED] [Concomitant]
     Route: 065

REACTIONS (4)
  - CARDIAC DISORDER [None]
  - CEREBROVASCULAR ACCIDENT [None]
  - MYOCARDIAL INFARCTION [None]
  - OVERDOSE [None]
